FAERS Safety Report 6703843-4 (Version None)
Quarter: 2010Q2

REPORT INFORMATION
  Report Type: 
  Country: None (occurrence: None)
  Receive Date: 20100430
  Receipt Date: 20100421
  Transmission Date: 20101027
  Serious: Yes (Other)
  Sender: FDA-Public Use
  Company Number: US-PFIZER INC-2010051892

PATIENT
  Sex: Male
  Weight: 76 kg

DRUGS (6)
  1. XALATAN [Suspect]
     Indication: GLAUCOMA
     Dosage: UNK
     Route: 047
  2. TIMOLOL [Concomitant]
     Dosage: UNK
     Route: 047
  3. DIGOXIN [Concomitant]
     Dosage: UNK
  4. WARFARIN [Concomitant]
     Dosage: UNK
  5. VIAGRA [Concomitant]
     Dosage: UNK
  6. ARTHROTEC [Concomitant]
     Dosage: UNK

REACTIONS (2)
  - BODY HEIGHT DECREASED [None]
  - EXPIRED DRUG ADMINISTERED [None]
